FAERS Safety Report 4836256-0 (Version None)
Quarter: 2005Q4

REPORT INFORMATION
  Report Type: 
  Country: None (occurrence: None)
  Receive Date: 20051118
  Receipt Date: 20051103
  Transmission Date: 20060501
  Serious: Yes (Other)
  Sender: FDA-Public Use
  Company Number: 219192

PATIENT
  Age: 66 Year
  Sex: Male

DRUGS (1)
  1. RITUXAN [Suspect]
     Indication: NON-HODGKIN'S LYMPHOMA
     Dosage: 375 MG/KG
     Dates: start: 20050608

REACTIONS (4)
  - EMBOLISM [None]
  - FINGER AMPUTATION [None]
  - GANGRENE [None]
  - TOXIC EPIDERMAL NECROLYSIS [None]
